FAERS Safety Report 20171289 (Version 3)
Quarter: 2022Q3

REPORT INFORMATION
  Report Type: Spontaneous
  Country: US (occurrence: None)
  Receive Date: 20211210
  Receipt Date: 20220715
  Transmission Date: 20221027
  Serious: Yes (Other)
  Sender: FDA-Public Use
  Company Number: 2021A856806

PATIENT
  Age: 43 Year
  Sex: Female
  Weight: 86.2 kg

DRUGS (54)
  1. PRILOSEC [Suspect]
     Active Substance: OMEPRAZOLE MAGNESIUM
     Indication: Gastrooesophageal reflux disease
     Route: 048
     Dates: start: 2001, end: 2018
  2. PRILOSEC [Suspect]
     Active Substance: OMEPRAZOLE MAGNESIUM
     Indication: Gastrooesophageal reflux disease
     Dosage: GENERIC
     Route: 065
     Dates: start: 2014, end: 2021
  3. PRILOSEC OTC [Suspect]
     Active Substance: OMEPRAZOLE MAGNESIUM
     Indication: Gastrooesophageal reflux disease
     Route: 048
     Dates: start: 2001, end: 2018
  4. PRILOSEC OTC [Suspect]
     Active Substance: OMEPRAZOLE MAGNESIUM
     Indication: Gastrooesophageal reflux disease
     Route: 048
     Dates: start: 20180101, end: 20180101
  5. PROTONIX [Suspect]
     Active Substance: PANTOPRAZOLE SODIUM
     Indication: Gastrooesophageal reflux disease
     Route: 065
     Dates: start: 2017, end: 2018
  6. CARVEDILOL [Concomitant]
     Active Substance: CARVEDILOL
     Dates: start: 20180509
  7. NOVOLOG [Concomitant]
     Active Substance: INSULIN ASPART
  8. TRAMADOL [Concomitant]
     Active Substance: TRAMADOL
     Indication: Pain
     Dates: start: 2012, end: 2013
  9. TRAMADOL [Concomitant]
     Active Substance: TRAMADOL
     Indication: Pain
     Dates: start: 2017
  10. NIFEDIPINE [Concomitant]
     Active Substance: NIFEDIPINE
  11. PREGABALIN [Concomitant]
     Active Substance: PREGABALIN
  12. GABAPENTIN [Concomitant]
     Active Substance: GABAPENTIN
  13. BUSPIRONE [Concomitant]
     Active Substance: BUSPIRONE HYDROCHLORIDE
  14. CIPROFLOXACIN [Concomitant]
     Active Substance: CIPROFLOXACIN
     Indication: Infection
     Dates: start: 201701
  15. CIPROFLOXACIN [Concomitant]
     Active Substance: CIPROFLOXACIN
     Indication: Infection
     Dates: start: 202109
  16. METFORMIN HYDROCHLORIDE [Concomitant]
     Active Substance: METFORMIN HYDROCHLORIDE
     Dates: start: 20090408
  17. CLONIDINE [Concomitant]
     Active Substance: CLONIDINE
     Dates: start: 20090408
  18. GLIPIZIDE [Concomitant]
     Active Substance: GLIPIZIDE
     Dates: start: 20090408
  19. ALLEGRA [Concomitant]
     Active Substance: FEXOFENADINE HYDROCHLORIDE
     Dates: start: 20090408
  20. VITAMIN D [Concomitant]
     Active Substance: VITAMIN D NOS
     Dates: start: 20090408
  21. MELOXICAM [Concomitant]
     Active Substance: MELOXICAM
     Indication: Pain
     Dates: start: 20090408
  22. MELOXICAM [Concomitant]
     Active Substance: MELOXICAM
     Indication: Pain
     Dates: start: 2017
  23. OXYCODONE [Concomitant]
     Active Substance: OXYCODONE
     Dates: start: 20090408
  24. TETRAFERRIC TRICITRATE DECAHYDRATE [Concomitant]
     Active Substance: TETRAFERRIC TRICITRATE DECAHYDRATE
     Dates: start: 20090408
  25. RENVELA [Concomitant]
     Active Substance: SEVELAMER CARBONATE
     Dates: start: 20090408
  26. ASPIRIN [Concomitant]
     Active Substance: ASPIRIN
  27. LOVAZA [Concomitant]
     Active Substance: OMEGA-3-ACID ETHYL ESTERS
  28. ONDANSETRON [Concomitant]
     Active Substance: ONDANSETRON
  29. HYDROCODONE [Concomitant]
     Active Substance: HYDROCODONE
  30. HUMALOG [Concomitant]
     Active Substance: INSULIN LISPRO
  31. METOPROLOL TARTRATE [Concomitant]
     Active Substance: METOPROLOL TARTRATE
  32. ULTRAM [Concomitant]
     Active Substance: TRAMADOL HYDROCHLORIDE
     Indication: Pain
     Dates: start: 200410
  33. ULTRAM [Concomitant]
     Active Substance: TRAMADOL HYDROCHLORIDE
     Indication: Pain
     Dates: start: 201811
  34. AZITHROMYCIN [Concomitant]
     Active Substance: AZITHROMYCIN
     Indication: Congenital infection
     Dates: start: 201807
  35. AZITHROMYCIN [Concomitant]
     Active Substance: AZITHROMYCIN
     Indication: Congenital infection
     Dates: start: 202011
  36. IRBESARTAN [Concomitant]
     Active Substance: IRBESARTAN
     Indication: Blood pressure measurement
     Dates: start: 201709
  37. IRBESARTAN [Concomitant]
     Active Substance: IRBESARTAN
     Indication: Blood pressure measurement
     Dates: start: 202109
  38. LOSARTAN [Concomitant]
     Active Substance: LOSARTAN
     Indication: Blood pressure measurement
     Dates: start: 201709
  39. LOSARTAN [Concomitant]
     Active Substance: LOSARTAN
     Indication: Blood pressure measurement
     Dates: start: 202109
  40. COZAAR [Concomitant]
     Active Substance: LOSARTAN POTASSIUM
     Indication: Blood pressure measurement
     Dates: start: 201401
  41. COZAAR [Concomitant]
     Active Substance: LOSARTAN POTASSIUM
     Indication: Blood pressure measurement
     Dates: start: 201701
  42. FUROSEMIDE [Concomitant]
     Active Substance: FUROSEMIDE
     Indication: Renal disorder
     Dates: start: 201606
  43. FUROSEMIDE [Concomitant]
     Active Substance: FUROSEMIDE
     Indication: Renal disorder
     Dates: start: 201903
  44. LASIX [Concomitant]
     Active Substance: FUROSEMIDE
     Indication: Renal disorder
     Dates: start: 201709
  45. LASIX [Concomitant]
     Active Substance: FUROSEMIDE
     Indication: Renal disorder
     Dates: start: 202109
  46. HYDROCHLOROTHIAZIDE [Concomitant]
     Active Substance: HYDROCHLOROTHIAZIDE
     Indication: Blood pressure measurement
     Dates: start: 200410
  47. HYDROCHLOROTHIAZIDE [Concomitant]
     Active Substance: HYDROCHLOROTHIAZIDE
     Indication: Blood pressure measurement
     Dates: start: 201811
  48. PRAVASTATIN [Concomitant]
     Active Substance: PRAVASTATIN
     Indication: Cardiac disorder
     Dates: start: 2017, end: 2018
  49. CRESTOR [Concomitant]
     Active Substance: ROSUVASTATIN CALCIUM
     Indication: Blood cholesterol
     Dates: start: 201007
  50. CRESTOR [Concomitant]
     Active Substance: ROSUVASTATIN CALCIUM
     Indication: Blood cholesterol
     Dates: start: 201103
  51. HYDRALAZINE [Concomitant]
     Active Substance: HYDRALAZINE HYDROCHLORIDE
     Indication: Hypersensitivity
     Dates: start: 201709
  52. IBUPROFEN [Concomitant]
     Active Substance: IBUPROFEN
     Indication: Pain
  53. ACETAMINOPHEN [Concomitant]
     Active Substance: ACETAMINOPHEN
     Indication: Pain
  54. TUMS [Concomitant]
     Active Substance: CALCIUM CARBONATE

REACTIONS (4)
  - Chronic kidney disease [Not Recovered/Not Resolved]
  - End stage renal disease [Not Recovered/Not Resolved]
  - Acute kidney injury [Not Recovered/Not Resolved]
  - Renal failure [Unknown]

NARRATIVE: CASE EVENT DATE: 20170101
